FAERS Safety Report 5880390-3 (Version None)
Quarter: 2008Q3

REPORT INFORMATION
  Report Type: 
  Country: None (occurrence: None)
  Receive Date: 20080912
  Receipt Date: 20080819
  Transmission Date: 20090109
  Serious: No
  Sender: FDA-Public Use
  Company Number: US-ABBOTT-07P-163-0416531-00

PATIENT
  Sex: Female

DRUGS (2)
  1. HUMIRA [Suspect]
     Indication: CROHN'S DISEASE
     Route: 058
  2. HUMIRA [Suspect]
     Route: 058

REACTIONS (1)
  - ARTHRALGIA [None]
